FAERS Safety Report 21586434 (Version 3)
Quarter: 2022Q4

REPORT INFORMATION
  Report Type: Spontaneous
  Country: US (occurrence: US)
  Receive Date: 20221112
  Receipt Date: 20221125
  Transmission Date: 20230113
  Serious: Yes (Death, Hospitalization)
  Sender: FDA-Public Use
  Company Number: US-KARYOPHARM-2022KPT001364

PATIENT

DRUGS (15)
  1. XPOVIO [Suspect]
     Active Substance: SELINEXOR
     Indication: Plasma cell myeloma
     Dosage: 100 MG, WEEKLY ON DAYS 1, 8, 15, AND 22 OF 28-DAY CYCLE
     Route: 048
     Dates: start: 20221105, end: 20221112
  2. ATORVASTATIN [Concomitant]
     Active Substance: ATORVASTATIN
  3. COMBIGAN [Concomitant]
     Active Substance: BRIMONIDINE TARTRATE\TIMOLOL MALEATE
  4. DARZALEX [Concomitant]
     Active Substance: DARATUMUMAB
  5. DEXAMETHASONE [Concomitant]
     Active Substance: DEXAMETHASONE
  6. FINASTERIDE [Concomitant]
     Active Substance: FINASTERIDE
  7. GLIPIZIDE [Concomitant]
     Active Substance: GLIPIZIDE
  8. JANUVIA [Concomitant]
     Active Substance: SITAGLIPTIN PHOSPHATE
  9. JARDIANCE [Concomitant]
     Active Substance: EMPAGLIFLOZIN
  10. LEVOTHYROXINE [Concomitant]
     Active Substance: LEVOTHYROXINE
  11. LOPRESSOR [Concomitant]
     Active Substance: METOPROLOL TARTRATE
  12. MURO 128 [Concomitant]
     Active Substance: SODIUM CHLORIDE
  13. TAMSULOSIN [Concomitant]
     Active Substance: TAMSULOSIN
  14. VALTREX [Concomitant]
     Active Substance: VALACYCLOVIR HYDROCHLORIDE
  15. VANCOMYCIN [Concomitant]
     Active Substance: VANCOMYCIN

REACTIONS (4)
  - Death [Fatal]
  - White blood cell count decreased [Unknown]
  - Platelet count decreased [Unknown]
  - Asthenia [Unknown]

NARRATIVE: CASE EVENT DATE: 20220101
